FAERS Safety Report 13053154 (Version 1)
Quarter: 2016Q4

REPORT INFORMATION
  Report Type: Report from Study
  Country: None (occurrence: US)
  Receive Date: 20161222
  Receipt Date: 20161222
  Transmission Date: 20170207
  Serious: No
  Sender: FDA-Public Use
  Company Number: US-BIOVITRUM-2016US0267

PATIENT
  Age: 44 Year
  Sex: Male

DRUGS (2)
  1. PRILOSEC [Concomitant]
     Active Substance: OMEPRAZOLE MAGNESIUM
  2. KINERET [Suspect]
     Active Substance: ANAKINRA
     Indication: STILL^S DISEASE ADULT ONSET
     Route: 058
     Dates: start: 20160322

REACTIONS (2)
  - Injection site swelling [Recovering/Resolving]
  - Injection site erythema [Recovering/Resolving]

NARRATIVE: CASE EVENT DATE: 201604
